FAERS Safety Report 11165128 (Version 3)
Quarter: 2015Q3

REPORT INFORMATION
  Report Type: Spontaneous
  Country: US (occurrence: US)
  Receive Date: 20150604
  Receipt Date: 20150826
  Transmission Date: 20151125
  Serious: No
  Sender: FDA-Public Use
  Company Number: US-PFIZER INC-2015186243

PATIENT
  Age: 70 Year
  Sex: Male
  Weight: 99 kg

DRUGS (6)
  1. AVINZA [Concomitant]
     Active Substance: MORPHINE SULFATE
     Indication: PAIN
     Dosage: 30 MG, UNK
     Dates: start: 2013
  2. TRAZODONE [Concomitant]
     Active Substance: TRAZODONE HYDROCHLORIDE
     Dosage: 300 MG, DAILY (100 MG THREE TABLET AT BED TIME)
     Dates: start: 201407, end: 201407
  3. CARDURA [Concomitant]
     Active Substance: DOXAZOSIN MESYLATE
     Dosage: 4 MG, SINGLE
     Dates: start: 201507
  4. VICODIN [Suspect]
     Active Substance: ACETAMINOPHEN\HYDROCODONE BITARTRATE
     Indication: SCIATIC NERVE INJURY
     Dosage: HYDROCODONE BITARTRATE 5MG / PARACETAMOL 325, MG, (WHOLE OF ONE MAY BE TWO)
  5. VICODIN [Suspect]
     Active Substance: ACETAMINOPHEN\HYDROCODONE BITARTRATE
     Indication: PAIN
     Dosage: HYDROCODONE BITARTRATE 5MG, ACETAMINOPHEN 325MG
     Dates: start: 201102
  6. PRISTIQ EXTENDED RELEASE [Concomitant]
     Active Substance: DESVENLAFAXINE SUCCINATE
     Dosage: 100 MG, SINGLE
     Dates: start: 201507

REACTIONS (1)
  - Drug effect incomplete [Unknown]
